FAERS Safety Report 5302164-4 (Version None)
Quarter: 2007Q2

REPORT INFORMATION
  Report Type: 
  Country: None (occurrence: None)
  Receive Date: 20070416
  Receipt Date: 20070416
  Transmission Date: 20071010
  Serious: Yes (Hospitalization)
  Sender: FDA-Public Use
  Company Number: None

PATIENT
  Sex: Male
  Weight: 96.6 kg

DRUGS (3)
  1. CYTARABINE [Suspect]
     Dosage: 1470 MG
  2. DAUNORUBICIN HCL [Suspect]
     Dosage: 283.5 MG
  3. MYLOTARG [Suspect]
     Dosage: 12.6 MG

REACTIONS (5)
  - CHEST PAIN [None]
  - DYSPNOEA [None]
  - ECG SIGNS OF MYOCARDIAL ISCHAEMIA [None]
  - HYPOTENSION [None]
  - PROCEDURAL COMPLICATION [None]
